FAERS Safety Report 8974310 (Version 1)
Quarter: 2012Q4

REPORT INFORMATION
  Report Type: Spontaneous
  Country: US (occurrence: None)
  Receive Date: 20121217
  Receipt Date: 20121217
  Transmission Date: 20130627
  Serious: Yes (Life-Threatening, Disabling)
  Sender: FDA-Public Use
  Company Number: None

PATIENT
  Age: 56 Year
  Sex: Female
  Weight: 61.24 kg

DRUGS (1)
  1. CIPROFLOXACIN [Suspect]
     Route: 048
     Dates: start: 20121213, end: 20121214

REACTIONS (7)
  - Tremor [None]
  - Nausea [None]
  - Tinnitus [None]
  - Malaise [None]
  - Pain in extremity [None]
  - Arthropathy [None]
  - Paraesthesia [None]
